FAERS Safety Report 10014791 (Version 1)
Quarter: 2014Q1

REPORT INFORMATION
  Report Type: Spontaneous
  Country: US (occurrence: US)
  Receive Date: 20140317
  Receipt Date: 20140317
  Transmission Date: 20141002
  Serious: No
  Sender: FDA-Public Use
  Company Number: US-SHIRE-US201400377

PATIENT
  Sex: 0

DRUGS (4)
  1. VYVANSE [Suspect]
     Indication: PRODUCT USED FOR UNKNOWN INDICATION
     Dosage: 70 MG, ONE DOSE (AT 21:00)
     Route: 048
     Dates: start: 20140305, end: 20140305
  2. CLONAZEPAM [Concomitant]
     Indication: PRODUCT USED FOR UNKNOWN INDICATION
     Dosage: 1 MG, UNKNOWN
     Route: 065
  3. PRAMIPEXOLE [Concomitant]
     Indication: PRODUCT USED FOR UNKNOWN INDICATION
     Dosage: 0.25 MG, UNKNOWN
     Route: 065
  4. CALMS FORTE [Concomitant]
     Indication: PRODUCT USED FOR UNKNOWN INDICATION
     Dosage: UNK, UNKNOWN
     Route: 065

REACTIONS (6)
  - Feeling abnormal [Recovering/Resolving]
  - Accidental exposure to product [Recovered/Resolved]
  - Insomnia [Recovering/Resolving]
  - Restlessness [Recovering/Resolving]
  - Logorrhoea [Recovering/Resolving]
  - Tremor [Recovering/Resolving]
